FAERS Safety Report 26003416 (Version 1)
Quarter: 2025Q4

REPORT INFORMATION
  Report Type: Spontaneous
  Country: GB (occurrence: GB)
  Receive Date: 20251106
  Receipt Date: 20251106
  Transmission Date: 20260117
  Serious: Yes (Other)
  Sender: AUROBINDO
  Company Number: GB-MHRA-TPP20295314C9972668YC1761209657785

PATIENT
  Age: 59 Year
  Sex: Male
  Weight: 110 kg

DRUGS (14)
  1. ROSUVASTATIN [Suspect]
     Active Substance: ROSUVASTATIN
     Indication: Ill-defined disorder
     Dosage: 5 MILLIGRAM, ONCE A DAY
     Route: 065
     Dates: start: 20240613
  2. FOLIC ACID [Concomitant]
     Active Substance: FOLIC ACID
     Indication: Ill-defined disorder
     Dosage: 1 DOSAGE FORM, DAILY (TAKE ONE DAILY)
     Route: 065
     Dates: start: 20250729, end: 20251021
  3. TAMSULOSIN [Concomitant]
     Active Substance: TAMSULOSIN
     Indication: Ill-defined disorder
     Dosage: 1 DOSAGE FORM, DAILY(TAKE ONE DAILY)
     Route: 065
     Dates: start: 20230315
  4. ALLOPURINOL [Concomitant]
     Active Substance: ALLOPURINOL
     Indication: Ill-defined disorder
     Dosage: 2 DOSAGE FORM, DAILY (TAKE TWO DAILY)
     Route: 065
     Dates: start: 20240613
  5. BETAMETHASONE VALERATE [Concomitant]
     Active Substance: BETAMETHASONE VALERATE
     Indication: Ill-defined disorder
     Dosage: UNK, TWO TIMES A DAY (APPLY TWICE A DAY)
     Route: 065
     Dates: start: 20240613
  6. EDOXABAN [Concomitant]
     Active Substance: EDOXABAN
     Indication: Ill-defined disorder
     Dosage: 1 DOSAGE FORM, DAILY (TAKE ONE DAILY)
     Route: 065
     Dates: start: 20240613
  7. Flexitol [Concomitant]
     Indication: Ill-defined disorder
     Dosage: UNK, AS NECESSARY (APPLY AS REQUIRED)
     Route: 065
     Dates: start: 20240613, end: 20250807
  8. POTASSIUM BICARBONATE\SODIUM ALGINATE [Concomitant]
     Active Substance: POTASSIUM BICARBONATE\SODIUM ALGINATE
     Indication: Ill-defined disorder
     Dosage: UNK, FOUR TIMES/DAY (5ML-10ML 4 TIMES/DAY)
     Route: 065
     Dates: start: 20240613
  9. PROPRANOLOL [Concomitant]
     Active Substance: PROPRANOLOL HYDROCHLORIDE
     Indication: Ill-defined disorder
     Dosage: 1 DOSAGE FORM, AS DIRECTED (TAKE ONE EVERY18 HRS AS DIRECTED)
     Route: 065
     Dates: start: 20240613
  10. QVAR [Concomitant]
     Active Substance: BECLOMETHASONE DIPROPIONATE
     Indication: Ill-defined disorder
     Dosage: 2 DOSAGE FORM, TWO TIMES A DAY (TWO PUFFS TWICE A DAY)
     Route: 065
     Dates: start: 20240613
  11. ALBUTEROL [Concomitant]
     Active Substance: ALBUTEROL
     Indication: Ill-defined disorder
     Dosage: 2 DOSAGE FORM, AS NECESSARY (TWO PUFFS AS REQUIRED)
     Route: 065
     Dates: start: 20240613
  12. MINERAL OIL\PARAFFIN [Concomitant]
     Active Substance: MINERAL OIL\PARAFFIN
     Indication: Ill-defined disorder
     Dosage: UNK (USE DAILY AFER SHOWERING/BATHING AS EMOLLIENT)
     Route: 065
     Dates: start: 20250430
  13. LANSOPRAZOLE [Concomitant]
     Active Substance: LANSOPRAZOLE
     Indication: Ill-defined disorder
     Dosage: 1 DOSAGE FORM, ONCE A DAY (TAKE ONE CAPSULE EACH DAY WITH HALF A15MG)
     Route: 065
     Dates: start: 20250716
  14. EZETIMIBE [Concomitant]
     Active Substance: EZETIMIBE
     Indication: Ill-defined disorder
     Dosage: 1 DOSAGE FORM, DAILY (TAKE ONE DAILY)
     Route: 065
     Dates: start: 20251023

REACTIONS (1)
  - Pain in jaw [Recovering/Resolving]
